FAERS Safety Report 9521605 (Version 1)
Quarter: 2013Q1

REPORT INFORMATION
  Report Type: Spontaneous
  Country: US (occurrence: None)
  Receive Date: 20130305
  Receipt Date: 20130305
  Transmission Date: 20140127
  Serious: Yes (Hospitalization)
  Sender: FDA-Public Use
  Company Number: 163-21880-12072189

PATIENT
  Age: 81 Year
  Sex: Male
  Weight: 204 kg

DRUGS (2)
  1. REVLIMID (LENALIDOMIDE) (CAPSULES) [Suspect]
     Indication: PLASMA CELL MYELOMA
     Dosage: 25 MG, 21 IN 21 D, PO
     Route: 048
     Dates: start: 20120308
  2. DIGOXIN (DIGOXIN) (UNKNOWN) (DIGOXIN) [Concomitant]

REACTIONS (2)
  - Diarrhoea [None]
  - Atrial fibrillation [None]
